FAERS Safety Report 20070508 (Version 2)
Quarter: 2021Q4

REPORT INFORMATION
  Report Type: Spontaneous
  Country: JP (occurrence: JP)
  Receive Date: 20211115
  Receipt Date: 20211210
  Transmission Date: 20220303
  Serious: Yes (Death, Hospitalization, Other)
  Sender: FDA-Public Use
  Company Number: JP-DSJP-DSJ-2021-136965

PATIENT
  Age: 79 Year
  Sex: Male
  Weight: 62 kg

DRUGS (27)
  1. EDOXABAN TOSYLATE [Suspect]
     Active Substance: EDOXABAN TOSYLATE
     Indication: Atrial fibrillation
     Dosage: 30 MG, QD
     Route: 048
     Dates: start: 20190510, end: 20211019
  2. VITAMINS NOS [Concomitant]
     Active Substance: VITAMINS
     Indication: Lumbar spinal stenosis
     Dosage: 5 UG, TID
     Route: 048
     Dates: start: 20161003, end: 20190321
  3. VITAMINS NOS [Concomitant]
     Active Substance: VITAMINS
     Indication: Peripheral arterial occlusive disease
     Dosage: 10 UG, TID
     Route: 048
     Dates: start: 20190322, end: 20211019
  4. LYRICA [Concomitant]
     Active Substance: PREGABALIN
     Indication: Lumbar spinal stenosis
     Dosage: 75 MG, BID
     Route: 048
     Dates: start: 20161110, end: 20171124
  5. LYRICA [Concomitant]
     Active Substance: PREGABALIN
     Dosage: 25 MG, TID
     Route: 048
     Dates: start: 20171125, end: 20201003
  6. LYRICA [Concomitant]
     Active Substance: PREGABALIN
     Dosage: 25 MG, TID
     Route: 048
     Dates: start: 20201222, end: 20211019
  7. HEPRONICATE [Concomitant]
     Indication: Peripheral arterial occlusive disease
     Dosage: 200 MG, TID
     Route: 048
     Dates: start: 20210208, end: 20211019
  8. HEPRONICATE [Concomitant]
     Indication: Skin ulcer
  9. HEPRONICATE [Concomitant]
     Indication: Gangrene
  10. DIOVAN [Concomitant]
     Active Substance: VALSARTAN
     Indication: Hypertension
     Dosage: 80 MG, QD
     Route: 048
     Dates: start: 20090117, end: 20100618
  11. HYDROCHLOROTHIAZIDE\VALSARTAN [Concomitant]
     Active Substance: HYDROCHLOROTHIAZIDE\VALSARTAN
     Indication: Hypertension
     Dosage: VALSARTAN80MG/HYDROCHLOROTHIAZIDE12.5MG, QD
     Route: 048
     Dates: start: 20100619, end: 20191004
  12. CILNIDIPINE [Concomitant]
     Active Substance: CILNIDIPINE
     Indication: Hypertension
     Dosage: 10 MG, QD
     Route: 048
     Dates: start: 20191005, end: 20211019
  13. ADALAT CC [Concomitant]
     Active Substance: NIFEDIPINE
     Indication: Hypertension
     Dosage: 10 MG, QD
     Route: 048
     Dates: start: 20110228, end: 20191130
  14. ICOSAPENT [Concomitant]
     Active Substance: ICOSAPENT
     Indication: Hyperlipidaemia
     Dosage: 600 MG, TID
     Route: 048
     Dates: start: 20090502, end: 20120518
  15. ICOSAPENT ETHYL [Concomitant]
     Active Substance: ICOSAPENT ETHYL
     Indication: Hyperlipidaemia
     Dosage: 900 MG, BID
     Route: 048
     Dates: start: 20120519, end: 20201003
  16. ALLOPURINOL [Concomitant]
     Active Substance: ALLOPURINOL
     Indication: Hyperuricaemia
     Dosage: 100 MG, QD
     Route: 048
     Dates: start: 20090829, end: 20201003
  17. MOBIC [Concomitant]
     Active Substance: MELOXICAM
     Indication: Osteoarthritis
     Dosage: 5 MG, BID
     Route: 048
     Dates: start: 20090110, end: 20090516
  18. MOBIC [Concomitant]
     Active Substance: MELOXICAM
     Indication: Lumbar spinal stenosis
     Dosage: 10 MG, QD
     Route: 048
     Dates: start: 20100619, end: 20110127
  19. MOBIC [Concomitant]
     Active Substance: MELOXICAM
     Indication: Peripheral arterial occlusive disease
     Dosage: 10 MG, QD
     Route: 048
     Dates: start: 20170826, end: 20190531
  20. MOBIC [Concomitant]
     Active Substance: MELOXICAM
     Dosage: 5 MG, QD
     Route: 048
     Dates: start: 20190601, end: 20191025
  21. CELECOXIB [Concomitant]
     Active Substance: CELECOXIB
     Indication: Osteoarthritis
     Dosage: 100 MG, BID
     Route: 048
     Dates: start: 20120421, end: 20120516
  22. BISOPROLOL FUMARATE [Concomitant]
     Active Substance: BISOPROLOL FUMARATE
     Indication: Ventricular tachycardia
     Dosage: 5 MG, QD
     Route: 048
     Dates: start: 20201105
  23. BISOPROLOL FUMARATE [Concomitant]
     Active Substance: BISOPROLOL FUMARATE
     Indication: Cardiac failure
  24. CRESTOR [Concomitant]
     Active Substance: ROSUVASTATIN CALCIUM
     Indication: Hypercholesterolaemia
     Dosage: 5 MG, QD
     Route: 048
     Dates: start: 20201105, end: 20211019
  25. AMLODIPINE BESYLATE [Concomitant]
     Active Substance: AMLODIPINE BESYLATE
     Indication: Hypertension
     Dosage: 2.5 MG, QD
     Route: 048
     Dates: start: 20201105
  26. CIFENLINE [Concomitant]
     Active Substance: CIFENLINE
     Indication: Ventricular tachycardia
     Dosage: 50 MG, QD
     Route: 048
     Dates: start: 20210225, end: 20211019
  27. CIFENLINE [Concomitant]
     Active Substance: CIFENLINE
     Indication: Cardiac failure

REACTIONS (6)
  - Putamen haemorrhage [Fatal]
  - Ventricular tachycardia [Recovered/Resolved]
  - Endocarditis [Not Recovered/Not Resolved]
  - Chronic kidney disease [Unknown]
  - Skin ulcer [Recovered/Resolved]
  - Gangrene [Recovered/Resolved]

NARRATIVE: CASE EVENT DATE: 20191001
